FAERS Safety Report 13383334 (Version 2)
Quarter: 2018Q4

REPORT INFORMATION
  Report Type: Spontaneous
  Country: US (occurrence: US)
  Receive Date: 20170329
  Receipt Date: 20181022
  Transmission Date: 20190204
  Serious: Yes (Other)
  Sender: FDA-Public Use
  Company Number: US-JNJFOC-20170329633

PATIENT
  Age: 62 Year
  Sex: Female

DRUGS (1)
  1. LEVAQUIN [Suspect]
     Active Substance: LEVOFLOXACIN
     Indication: PRODUCT USED FOR UNKNOWN INDICATION
     Route: 048
     Dates: start: 20100107, end: 20100113

REACTIONS (3)
  - Aortic aneurysm rupture [Unknown]
  - Aortic aneurysm [Recovering/Resolving]
  - Aortic dissection [Unknown]

NARRATIVE: CASE EVENT DATE: 20100407
